FAERS Safety Report 7968300-6 (Version None)
Quarter: 2011Q4

REPORT INFORMATION
  Report Type: 
  Country: None (occurrence: None)
  Receive Date: 20111121
  Receipt Date: 20110817
  Transmission Date: 20120403
  Serious: No
  Sender: FDA-Public Use
  Company Number: 1000022993

PATIENT
  Age: 64 Year
  Sex: Female

DRUGS (5)
  1. NAPROSYN (NAPROXEN) (NAPROXEN) [Concomitant]
  2. TAPAZOLE (THIAMAZOLE) (THIAMAZOLE) [Concomitant]
  3. VIIBRYD [Suspect]
     Indication: POST-TRAUMATIC STRESS DISORDER
     Dosage: 10 MG (10 MG, 1 IN 1 D), ORAL
     Route: 048
     Dates: start: 20110810
  4. VIIBRYD [Suspect]
     Indication: DEPRESSION
     Dosage: 10 MG (10 MG, 1 IN 1 D), ORAL
     Route: 048
     Dates: start: 20110810
  5. SKELAXIN (METAXALONE) (METAXALONE) [Concomitant]

REACTIONS (2)
  - LETHARGY [None]
  - INFLAMMATION [None]
